FAERS Safety Report 5595876-9 (Version None)
Quarter: 2008Q1

REPORT INFORMATION
  Report Type: 
  Country: None (occurrence: None)
  Receive Date: 20080118
  Receipt Date: 20070622
  Transmission Date: 20080703
  Serious: No
  Sender: FDA-Public Use
  Company Number: US-BRISTOL-MYERS SQUIBB COMPANY-13823976

PATIENT
  Sex: Female
  Weight: 59 kg

DRUGS (1)
  1. CEFZIL [Suspect]
     Indication: ESCHERICHIA INFECTION
     Route: 048
     Dates: start: 20070402, end: 20070101

REACTIONS (1)
  - RASH [None]
